FAERS Safety Report 5960552-7 (Version None)
Quarter: 2008Q4

REPORT INFORMATION
  Report Type: 
  Country: None (occurrence: None)
  Receive Date: 20081120
  Receipt Date: 20081111
  Transmission Date: 20090506
  Serious: Yes (Other)
  Sender: FDA-Public Use
  Company Number: US-PFIZER INC-2008080032

PATIENT
  Sex: Male
  Weight: 110.7 kg

DRUGS (8)
  1. INSPRA [Suspect]
     Indication: HYPERALDOSTERONISM
     Route: 048
  2. INSPRA [Suspect]
     Route: 048
     Dates: start: 20080814
  3. CLONIDINE [Concomitant]
     Dates: start: 20080101
  4. GARLIC [Concomitant]
  5. FLAXSEED OIL [Concomitant]
  6. ONE-A-DAY [Concomitant]
  7. VITAMINS [Concomitant]
  8. MULTI-VITAMINS [Concomitant]

REACTIONS (11)
  - ABDOMINAL PAIN [None]
  - CHEST PAIN [None]
  - FATIGUE [None]
  - HEADACHE [None]
  - HERPES ZOSTER [None]
  - HYPERTENSION [None]
  - HYPOAESTHESIA [None]
  - INSOMNIA [None]
  - JOINT SWELLING [None]
  - PAIN [None]
  - PARAESTHESIA [None]
